FAERS Safety Report 20518384 (Version 2)
Quarter: 2022Q1

REPORT INFORMATION
  Report Type: Other
  Country: US (occurrence: None)
  Receive Date: 20220225
  Receipt Date: 20220322
  Transmission Date: 20220424
  Serious: Yes (Other)
  Sender: FDA-Public Use
  Company Number: US-ROCHE-2752294

PATIENT
  Sex: Male

DRUGS (6)
  1. PEGASYS [Suspect]
     Active Substance: PEGINTERFERON ALFA-2A
     Indication: Polycythaemia vera
     Dosage: STRENGTH: 180 MCG, QUANTITY: 4 ML?INJECT 0.33 ML UNDER THE SKIN
     Route: 058
  2. PEGASYS [Suspect]
     Active Substance: PEGINTERFERON ALFA-2A
     Indication: Leukaemia
     Dosage: INJECT 0.25ML (45MCG TOTAL) SUBCUTANEOUSLY ONCE A WEEK?DOSE 180 MCG
     Route: 058
  3. AMBIEN [Concomitant]
     Active Substance: ZOLPIDEM TARTRATE
  4. PERIDEX [Concomitant]
     Active Substance: CHLORHEXIDINE GLUCONATE
  5. CYMBALTA [Concomitant]
     Active Substance: DULOXETINE HYDROCHLORIDE
  6. HYTONE (UNITED STATES) [Concomitant]

REACTIONS (2)
  - Off label use [Unknown]
  - Atrial fibrillation [Unknown]
